FAERS Safety Report 7424504-2 (Version None)
Quarter: 2011Q2

REPORT INFORMATION
  Report Type: 
  Country: None (occurrence: None)
  Receive Date: 20110419
  Receipt Date: 20110411
  Transmission Date: 20111010
  Serious: Yes (Death, Hospitalization, Other)
  Sender: FDA-Public Use
  Company Number: US-TEVA-275984USA

PATIENT
  Sex: Female

DRUGS (9)
  1. OXALIPLATIN [Suspect]
     Indication: COLON CANCER
     Dosage: EVERY CYCLE
     Route: 051
     Dates: start: 20101229, end: 20101229
  2. LEUCOVORIN CALCIUM TABLET 5MG [Suspect]
     Dosage: EVERY CYCLE
     Route: 051
     Dates: start: 20110221, end: 20110221
  3. LEUCOVORIN CALCIUM TABLET 5MG [Suspect]
     Indication: COLON CANCER
     Dosage: EVERY CYCLE
     Route: 051
     Dates: start: 20101229, end: 20101229
  4. FLUOROURACIL [Suspect]
     Dosage: EVERY CYCLE
     Route: 051
     Dates: start: 20110221, end: 20110221
  5. OXALIPLATIN [Suspect]
     Dosage: EVERY CYCLE
     Route: 051
     Dates: start: 20110221, end: 20110221
  6. FLUOROURACIL [Suspect]
     Indication: COLON CANCER
     Dosage: EVERY CYCLE
     Route: 051
     Dates: start: 20101229, end: 20101229
  7. PALONOSETRON HYDROCHLORIDE [Concomitant]
  8. HEPARIN [Concomitant]
  9. DIPHENHYDRAMINE [Concomitant]

REACTIONS (3)
  - ARRHYTHMIA [None]
  - DEEP VEIN THROMBOSIS [None]
  - ELECTROCARDIOGRAM QT PROLONGED [None]
